FAERS Safety Report 16641499 (Version 1)
Quarter: 2019Q3

REPORT INFORMATION
  Report Type: Spontaneous
  Country: FR (occurrence: FR)
  Receive Date: 20190729
  Receipt Date: 20190729
  Transmission Date: 20191004
  Serious: Yes (Other)
  Sender: FDA-Public Use
  Company Number: FR-SUN PHARMACEUTICAL INDUSTRIES LTD-2019R1-214447

PATIENT
  Age: 41 Year
  Sex: Female

DRUGS (1)
  1. FOLIC ACID. [Suspect]
     Active Substance: FOLIC ACID
     Indication: PREOPERATIVE CARE
     Dosage: 5 MILLIGRAM, DAILY (HIGH DOSES)
     Route: 065
     Dates: end: 2018

REACTIONS (1)
  - Methylenetetrahydrofolate reductase deficiency [Recovered/Resolved]
